FAERS Safety Report 9189752 (Version 1)
Quarter: 2013Q1

REPORT INFORMATION
  Report Type: Spontaneous
  Country: US (occurrence: US)
  Receive Date: 20130326
  Receipt Date: 20130326
  Transmission Date: 20140127
  Serious: Yes (Other)
  Sender: FDA-Public Use
  Company Number: US-PFIZER INC-2013096138

PATIENT
  Sex: 0

DRUGS (3)
  1. NORVASC [Suspect]
     Dosage: 5 MG, UNK
  2. LIPITOR [Suspect]
     Dosage: 10 MG, UNK
  3. ZOLOFT [Suspect]
     Dosage: 25 MG, UNK

REACTIONS (1)
  - Cerebrovascular accident [Unknown]
